FAERS Safety Report 6087538-9 (Version None)
Quarter: 2009Q1

REPORT INFORMATION
  Report Type: 
  Country: None (occurrence: None)
  Receive Date: 20090223
  Receipt Date: 20090214
  Transmission Date: 20090719
  Serious: Yes (Other)
  Sender: FDA-Public Use
  Company Number: US-PFIZER INC-2009171228

PATIENT

DRUGS (1)
  1. CADUET [Suspect]

REACTIONS (1)
  - MYOCARDIAL INFARCTION [None]
